FAERS Safety Report 4507302-9 (Version None)
Quarter: 2004Q4

REPORT INFORMATION
  Report Type: 
  Country: None (occurrence: None)
  Receive Date: 20041025
  Receipt Date: 20031126
  Transmission Date: 20050328
  Serious: Yes (Other)
  Sender: FDA-Public Use
  Company Number: US-JNJFOC-20030600167

PATIENT
  Age: 50 Year
  Sex: Female

DRUGS (3)
  1. REMICADE [Suspect]
     Indication: RHEUMATOID ARTHRITIS
     Dosage: , 1 IN 1 DAY
     Dates: start: 20030423
  2. EVISTA [Concomitant]
  3. SYNTHROID [Concomitant]

REACTIONS (2)
  - ANAPHYLACTIC REACTION [None]
  - OPTIC NEURITIS [None]
